FAERS Safety Report 8118735-6 (Version None)
Quarter: 2012Q1

REPORT INFORMATION
  Report Type: 
  Country: None (occurrence: None)
  Receive Date: 20120202
  Receipt Date: 20120124
  Transmission Date: 20120608
  Serious: Yes (Life-Threatening, Hospitalization)
  Sender: FDA-Public Use
  Company Number: 2012MA001284

PATIENT
  Age: 75 Year
  Sex: Male

DRUGS (7)
  1. SPIRONOLACTONE [Concomitant]
  2. ASPIRIN [Concomitant]
  3. ENALAPRIL MALEATE [Suspect]
     Indication: CARDIAC FAILURE
     Dates: end: 20111129
  4. SIMVASTATIN [Concomitant]
  5. ACETAMINOPHEN [Concomitant]
  6. METOCLOPRAMIDE [Concomitant]
  7. TRAMADOL HYDROCHLORIDE [Suspect]
     Indication: PRODUCT USED FOR UNKNOWN INDICATION
     Dates: start: 20111101, end: 20111129

REACTIONS (3)
  - DYSARTHRIA [None]
  - ANGIOEDEMA [None]
  - CONFUSIONAL STATE [None]
